FAERS Safety Report 5827781-4 (Version None)
Quarter: 2008Q3

REPORT INFORMATION
  Report Type: 
  Country: None (occurrence: None)
  Receive Date: 20080730
  Receipt Date: 20080722
  Transmission Date: 20090109
  Serious: Yes (Hospitalization)
  Sender: FDA-Public Use
  Company Number: US-GENENTECH-263858

PATIENT
  Age: 67 Year
  Sex: Male
  Weight: 116 kg

DRUGS (11)
  1. AVASTIN [Suspect]
     Indication: NON-SMALL CELL LUNG CANCER
     Dosage: 1500 MG, SINGLE
     Route: 042
     Dates: start: 20080408, end: 20080408
  2. TAXOL [Concomitant]
     Indication: DRUG USE FOR UNKNOWN INDICATION
  3. CARBOPLATIN [Concomitant]
     Indication: DRUG USE FOR UNKNOWN INDICATION
  4. LIPITOR [Concomitant]
     Indication: DRUG USE FOR UNKNOWN INDICATION
     Dosage: 40 MG, QD
  5. METFORMIN HCL [Concomitant]
     Indication: DRUG USE FOR UNKNOWN INDICATION
     Dosage: 500 MG, BID
  6. PLAVIX [Concomitant]
     Indication: DRUG USE FOR UNKNOWN INDICATION
     Dosage: 75 MG, QD
  7. ESSIAC HERB [Concomitant]
     Indication: DRUG USE FOR UNKNOWN INDICATION
  8. ZOMETA [Concomitant]
     Indication: DRUG USE FOR UNKNOWN INDICATION
  9. NEULASTA [Concomitant]
     Indication: DRUG USE FOR UNKNOWN INDICATION
  10. PROCRIT [Concomitant]
     Indication: DRUG USE FOR UNKNOWN INDICATION
     Dosage: 40000 U, UNK
  11. CARVEDILOL [Suspect]
     Indication: DRUG USE FOR UNKNOWN INDICATION
     Dosage: 12.5 MG, BID

REACTIONS (2)
  - NEUTROPENIA [None]
  - OESOPHAGEAL CANDIDIASIS [None]
